FAERS Safety Report 8609012-5 (Version None)
Quarter: 2012Q3

REPORT INFORMATION
  Report Type: 
  Country: None (occurrence: None)
  Receive Date: 20120821
  Receipt Date: 20120816
  Transmission Date: 20120928
  Serious: Yes (Other)
  Sender: FDA-Public Use
  Company Number: GB-VIIV HEALTHCARE LIMITED-B0804044A

PATIENT
  Age: 43 Year
  Sex: Male
  Weight: 94 kg

DRUGS (6)
  1. NABILONE [Concomitant]
     Route: 048
  2. ABACAVIR SULFATE/LAMIVUDINE [Suspect]
     Indication: IMMUNOSUPPRESSION
     Dosage: 1IUAX PER DAY
     Route: 048
     Dates: start: 20100101
  3. ATAZANAVIR [Suspect]
     Indication: IMMUNOSUPPRESSION
     Dosage: 1IUAX PER DAY
     Route: 048
     Dates: start: 20120327, end: 20120510
  4. EFAVIRENZ [Suspect]
     Indication: PRODUCT USED FOR UNKNOWN INDICATION
     Route: 065
     Dates: start: 20120326
  5. RITONAVIR [Suspect]
     Indication: PRODUCT USED FOR UNKNOWN INDICATION
     Route: 065
  6. PREGABALIN [Concomitant]
     Route: 048

REACTIONS (3)
  - JAUNDICE [None]
  - SLEEP DISORDER [None]
  - HEAD DISCOMFORT [None]
